FAERS Safety Report 16812781 (Version 1)
Quarter: 2019Q3

REPORT INFORMATION
  Report Type: Spontaneous
  Country: DE (occurrence: DE)
  Receive Date: 20190916
  Receipt Date: 20190916
  Transmission Date: 20191005
  Serious: No
  Sender: FDA-Public Use
  Company Number: DE-JAZZ-2018-DE-015919

PATIENT

DRUGS (1)
  1. ERWINASE [Suspect]
     Active Substance: ASPARAGINASE ERWINIA CHRYSANTHEMI
     Indication: ACUTE LYMPHOCYTIC LEUKAEMIA
     Dosage: 20.000 U, UNK
     Route: 065

REACTIONS (2)
  - Incorrect dose administered [Unknown]
  - Hypersensitivity [Not Recovered/Not Resolved]
